FAERS Safety Report 26081553 (Version 3)
Quarter: 2025Q4

REPORT INFORMATION
  Report Type: Spontaneous
  Country: US (occurrence: US)
  Receive Date: 20251124
  Receipt Date: 20251202
  Transmission Date: 20260118
  Serious: Yes (Hospitalization)
  Sender: ABBVIE
  Company Number: US-ABBVIE-6560538

PATIENT
  Sex: Female

DRUGS (1)
  1. DALVANCE [Suspect]
     Active Substance: DALBAVANCIN HYDROCHLORIDE
     Indication: Infection
     Dosage: TIME INTERVAL: AS NECESSARY: UNKNOWN
     Route: 042

REACTIONS (2)
  - Hospitalisation [Unknown]
  - Cellulitis [Unknown]

NARRATIVE: CASE EVENT DATE: 20250101
